FAERS Safety Report 6164675-1 (Version None)
Quarter: 2009Q2

REPORT INFORMATION
  Report Type: 
  Country: None (occurrence: None)
  Receive Date: 20090423
  Receipt Date: 20090422
  Transmission Date: 20091009
  Serious: Yes (Other)
  Sender: FDA-Public Use
  Company Number: GB-ROCHE-617937

PATIENT
  Sex: Male
  Weight: 98 kg

DRUGS (3)
  1. ORLISTAT [Suspect]
     Indication: OBESITY
     Route: 048
     Dates: start: 20081003
  2. LISINOPRIL [Concomitant]
     Indication: HYPERTENSION
     Route: 048
     Dates: start: 20090201
  3. LISINOPRIL [Concomitant]
     Route: 054
     Dates: start: 20081128

REACTIONS (1)
  - BLOOD PRESSURE INCREASED [None]
